FAERS Safety Report 25254965 (Version 4)
Quarter: 2025Q3

REPORT INFORMATION
  Report Type: Report from Study
  Country: US (occurrence: US)
  Receive Date: 20250430
  Receipt Date: 20250822
  Transmission Date: 20251020
  Serious: Yes (Hospitalization, Other)
  Sender: SUNOVION
  Company Number: US-SMPA-2025SPA005031

PATIENT
  Age: 61 Year
  Sex: Male

DRUGS (5)
  1. ORGOVYX [Suspect]
     Active Substance: RELUGOLIX
     Indication: Prostate cancer
     Route: 048
  2. ORGOVYX [Suspect]
     Active Substance: RELUGOLIX
     Dosage: 120 MG, QD (MAINTAINENCE DOSE)
     Route: 048
     Dates: start: 20250401
  3. TROSPIUM [Suspect]
     Active Substance: TROSPIUM
     Indication: Prostate cancer
  4. DARIFENACIN [Suspect]
     Active Substance: DARIFENACIN
     Indication: Prostate cancer
  5. TAMSULOSIN [Suspect]
     Active Substance: TAMSULOSIN
     Indication: Prostate cancer

REACTIONS (6)
  - Blood pressure abnormal [Unknown]
  - Bladder operation [Unknown]
  - Dialysis [Unknown]
  - Dry skin [Unknown]
  - Pruritus [Unknown]
  - Pain [Unknown]
